APPROVED DRUG PRODUCT: RITALIN LA
Active Ingredient: METHYLPHENIDATE HYDROCHLORIDE
Strength: 60MG **Federal Register determination that product was not discontinued or withdrawn for safety or effectiveness reasons**
Dosage Form/Route: CAPSULE, EXTENDED RELEASE;ORAL
Application: N021284 | Product #005
Applicant: SANDOZ INC
Approved: Oct 27, 2014 | RLD: Yes | RS: No | Type: DISCN